FAERS Safety Report 9267168 (Version 1)
Quarter: 2013Q2

REPORT INFORMATION
  Report Type: Spontaneous
  Country: US (occurrence: US)
  Receive Date: 20130502
  Receipt Date: 20130502
  Transmission Date: 20140414
  Serious: Yes (Hospitalization, Other)
  Sender: FDA-Public Use
  Company Number: US-TEVA-402203USA

PATIENT
  Age: 48 Year
  Sex: Male

DRUGS (10)
  1. MYCOPHENOLATE MOFETIL [Suspect]
     Indication: TRANSPLANT REJECTION
     Route: 065
     Dates: start: 2002
  2. MYCOPHENOLATE MOFETIL [Suspect]
     Indication: TRANSPLANT REJECTION
     Route: 065
     Dates: start: 2002
  3. RITUXIMAB [Suspect]
     Indication: TRANSPLANT REJECTION
     Dosage: FOUR CYCLES OF 780MG OVER 5 WEEKS
     Route: 065
  4. TACROLIMUS [Suspect]
     Indication: TRANSPLANT REJECTION
     Route: 065
  5. TACROLIMUS [Suspect]
     Indication: TRANSPLANT REJECTION
     Dosage: GOAL 10-12 MG/DL
     Route: 065
  6. PREDNISONE [Suspect]
     Indication: TRANSPLANT REJECTION
     Dosage: 7.5MG DAILY
     Route: 065
  7. PREDNISONE [Suspect]
     Indication: TRANSPLANT REJECTION
     Dosage: 20MG DAILY WITH SLOW TAPERING
     Route: 065
  8. METHYLPREDNISOLONE [Concomitant]
     Indication: TRANSPLANT REJECTION
     Route: 065
  9. CICLOSPORIN [Concomitant]
     Indication: TRANSPLANT REJECTION
  10. CICLOSPORIN [Concomitant]
     Indication: TRANSPLANT REJECTION

REACTIONS (4)
  - Progressive multifocal leukoencephalopathy [Unknown]
  - Coronary artery disease [Unknown]
  - Cardiac failure acute [Recovering/Resolving]
  - Transplant rejection [Recovering/Resolving]
